FAERS Safety Report 9624610 (Version 1)
Quarter: 2013Q4

REPORT INFORMATION
  Report Type: Spontaneous
  Country: PL (occurrence: PL)
  Receive Date: 20131015
  Receipt Date: 20131015
  Transmission Date: 20140711
  Serious: Yes (Death, Other)
  Sender: FDA-Public Use
  Company Number: PL-PFIZER INC-2013289040

PATIENT
  Age: 38 Year
  Sex: Male

DRUGS (4)
  1. CYTARABINE [Suspect]
     Dosage: 200 MG/M2 ON DAYS 15
  2. CYTARABINE [Suspect]
     Dosage: 1500 MG/M2, ON DAYS 15
  3. MITOXANTRONE HCL [Suspect]
     Dosage: 10 MG/M2, ON DAYS 12
  4. DAUNORUBICIN [Suspect]
     Dosage: 60 MG/M2, ON DAYS 13

REACTIONS (7)
  - Respiratory failure [Fatal]
  - Bone marrow failure [Unknown]
  - Granulocytopenia [Unknown]
  - Pneumonia [Unknown]
  - Interstitial lung disease [Unknown]
  - Sepsis [Unknown]
  - Hyperkalaemia [Unknown]
